FAERS Safety Report 23083518 (Version 1)
Quarter: 2023Q4

REPORT INFORMATION
  Report Type: Report from Study
  Country: US (occurrence: US)
  Receive Date: 20231019
  Receipt Date: 20231019
  Transmission Date: 20240109
  Serious: Yes (Other)
  Sender: FDA-Public Use
  Company Number: US-ABBVIE-5456805

PATIENT
  Sex: Female
  Weight: 85 kg

DRUGS (4)
  1. LINZESS [Suspect]
     Active Substance: LINACLOTIDE
     Indication: Constipation
     Dosage: FORM STRENGTH: 290 MICROGRAM
     Route: 048
     Dates: start: 2018
  2. EYLEA [Suspect]
     Active Substance: AFLIBERCEPT
     Indication: Macular oedema
     Route: 031
     Dates: start: 20200226, end: 20200226
  3. EYLEA [Suspect]
     Active Substance: AFLIBERCEPT
     Indication: Macular oedema
     Route: 031
     Dates: start: 20191231, end: 20191231
  4. EYLEA [Suspect]
     Active Substance: AFLIBERCEPT
     Indication: Macular oedema
     Route: 031
     Dates: start: 20200426, end: 20200426

REACTIONS (5)
  - Diabetic retinopathy [Not Recovered/Not Resolved]
  - Retinal scar [Not Recovered/Not Resolved]
  - Retinal detachment [Not Recovered/Not Resolved]
  - Blindness [Not Recovered/Not Resolved]
  - Retinal haemorrhage [Not Recovered/Not Resolved]

NARRATIVE: CASE EVENT DATE: 20190101
